FAERS Safety Report 4313087-1 (Version None)
Quarter: 2004Q1

REPORT INFORMATION
  Report Type: 
  Country: None (occurrence: None)
  Receive Date: 20040303
  Receipt Date: 20010419
  Transmission Date: 20041129
  Serious: Yes (Hospitalization)
  Sender: FDA-Public Use
  Company Number: US-JNJFOC-20040102272

PATIENT
  Age: 31 Year
  Sex: Male
  Weight: 75.9 kg

DRUGS (4)
  1. INFLIXIMAB (INFLIXIMAB, RECOMBINANT) LYOPHILIZED POWDER [Suspect]
     Indication: CROHN'S DISEASE
     Dosage: 5 MG/KG, INTRAVENOUS
     Route: 042
     Dates: start: 19960909
  2. PREDNISONE [Concomitant]
  3. PENTASA [Concomitant]
  4. FLAGYL [Concomitant]

REACTIONS (1)
  - RENAL CELL CARCINOMA STAGE III [None]
